FAERS Safety Report 16495339 (Version 1)
Quarter: 2019Q2

REPORT INFORMATION
  Report Type: Spontaneous
  Country: JP (occurrence: JP)
  Receive Date: 20190628
  Receipt Date: 20190628
  Transmission Date: 20190711
  Serious: Yes (Hospitalization)
  Sender: FDA-Public Use
  Company Number: JP-TEVA-2019-JP-003704J

PATIENT
  Age: 54 Year
  Sex: Female

DRUGS (1)
  1. ADEFURONIC TABLET 25MG [Suspect]
     Active Substance: DICLOFENAC SODIUM
     Indication: PRODUCT USED FOR UNKNOWN INDICATION
     Route: 065
     Dates: start: 201807, end: 201807

REACTIONS (2)
  - Laryngeal discomfort [Unknown]
  - Dysphonia [Unknown]
